FAERS Safety Report 8965513 (Version 1)
Quarter: 2012Q4

REPORT INFORMATION
  Report Type: Spontaneous
  Country: US (occurrence: None)
  Receive Date: 20121205
  Receipt Date: 20121205
  Transmission Date: 20130627
  Serious: Yes (Hospitalization)
  Sender: FDA-Public Use
  Company Number: 2012UCU075000597

PATIENT
  Age: 51 Year
  Sex: Female
  Weight: 59.88 kg

DRUGS (13)
  1. PERCOCET /00867901/ [Suspect]
  2. VALIUM [Suspect]
  3. WELLBUTRIN XL [Concomitant]
  4. CELEXA [Concomitant]
  5. TRAZODONE [Concomitant]
  6. SOMA [Concomitant]
  7. MESALAMINE [Concomitant]
  8. CIPROFLOXACIN [Concomitant]
  9. FLAGYL /00012501/ [Concomitant]
  10. AZATHIOPRINE [Concomitant]
  11. INFLIXIMAB [Concomitant]
  12. CIMZIA [Concomitant]
  13. ACETAMINOPHEN [Concomitant]

REACTIONS (1)
  - Detoxification [None]
